FAERS Safety Report 16367940 (Version 1)
Quarter: 2019Q2

REPORT INFORMATION
  Report Type: Spontaneous
  Country: US (occurrence: US)
  Receive Date: 20190422
  Receipt Date: 20190422
  Transmission Date: 20190711
  Serious: Yes (Hospitalization)
  Sender: FDA-Public Use
  Company Number: None

PATIENT
  Age: 84 Year
  Sex: Male
  Weight: 72.57 kg

DRUGS (1)
  1. METHIMAZOLE. [Suspect]
     Active Substance: METHIMAZOLE
     Indication: HYPERTHYROIDISM
     Route: 048
     Dates: start: 20180629, end: 20180710

REACTIONS (6)
  - Neutropenia [None]
  - Body temperature increased [None]
  - Cough [None]
  - Neutrophil count decreased [None]
  - Leukopenia [None]
  - Secretion discharge [None]

NARRATIVE: CASE EVENT DATE: 20180709
